FAERS Safety Report 12718206 (Version 1)
Quarter: 2016Q3

REPORT INFORMATION
  Report Type: Spontaneous
  Country: JP (occurrence: JP)
  Receive Date: 20160906
  Receipt Date: 20160906
  Transmission Date: 20161109
  Serious: Yes (Other)
  Sender: FDA-Public Use
  Company Number: PHHY2016JP122278

PATIENT
  Age: 69 Year
  Sex: Male

DRUGS (3)
  1. NITRIC OXIDE. [Concomitant]
     Active Substance: NITRIC OXIDE
     Indication: ACUTE RESPIRATORY DISTRESS SYNDROME
     Route: 055
  2. PIPERACILLIN AND TAZOBACTAM [Concomitant]
     Active Substance: PIPERACILLIN SODIUM\TAZOBACTAM SODIUM
     Indication: PNEUMONIA
     Dosage: 4.5 G, Q8H
     Route: 065
  3. VANCOMYCIN [Suspect]
     Active Substance: VANCOMYCIN
     Indication: PNEUMONIA
     Dosage: 1 G, Q12H
     Route: 065

REACTIONS (3)
  - Generalised oedema [Unknown]
  - Renal impairment [Unknown]
  - Drug level increased [Unknown]
